FAERS Safety Report 15701770 (Version 1)
Quarter: 2018Q4

REPORT INFORMATION
  Report Type: Spontaneous
  Country: US (occurrence: US)
  Receive Date: 20181208
  Receipt Date: 20181208
  Transmission Date: 20190205
  Serious: No
  Sender: FDA-Public Use
  Company Number: US-DRREDDYS-USA/USA/18/0105715

PATIENT
  Sex: Female

DRUGS (1)
  1. MYOFLEX [Suspect]
     Active Substance: TROLAMINE SALICYLATE
     Indication: PRODUCT USED FOR UNKNOWN INDICATION
     Dosage: FOUR OUNCES
     Route: 003

REACTIONS (2)
  - Expired product administered [Unknown]
  - Rash [Unknown]
